FAERS Safety Report 7609086-4 (Version None)
Quarter: 2011Q3

REPORT INFORMATION
  Report Type: 
  Country: None (occurrence: None)
  Receive Date: 20110714
  Receipt Date: 20110708
  Transmission Date: 20111222
  Serious: Yes (Other)
  Sender: FDA-Public Use
  Company Number: US-PFIZER INC-2011146369

PATIENT
  Sex: Female
  Weight: 70.74 kg

DRUGS (1)
  1. TOVIAZ [Suspect]
     Indication: URINARY INCONTINENCE
     Dosage: 8 MG, 1X/DAY
     Route: 048

REACTIONS (4)
  - URINARY INCONTINENCE [None]
  - DIABETES MELLITUS [None]
  - DRUG EFFECT DECREASED [None]
  - HEARING IMPAIRED [None]
